FAERS Safety Report 9572026 (Version 2)
Quarter: 2013Q4

REPORT INFORMATION
  Report Type: Spontaneous
  Country: US (occurrence: US)
  Receive Date: 20131001
  Receipt Date: 20131001
  Transmission Date: 20140711
  Serious: No
  Sender: FDA-Public Use
  Company Number: US-PURDUE-USA-2011-0080724

PATIENT
  Sex: Female
  Weight: 52.61 kg

DRUGS (2)
  1. BUTRANS [Suspect]
     Indication: PAIN
     Dosage: 20 MG, Q1H
     Route: 062
     Dates: start: 20110708, end: 20111024
  2. BUTRANS [Suspect]
     Dosage: 10 MCG, Q1H
     Route: 062

REACTIONS (2)
  - Skin reaction [Unknown]
  - Application site rash [Unknown]
